FAERS Safety Report 9907635 (Version 4)
Quarter: 2014Q2

REPORT INFORMATION
  Report Type: Spontaneous
  Country: IT (occurrence: IT)
  Receive Date: 20140219
  Receipt Date: 20140404
  Transmission Date: 20141212
  Serious: No
  Sender: FDA-Public Use
  Company Number: IT-BIOGENIDEC-2014BI013745

PATIENT
  Age: 49 Year
  Sex: Female

DRUGS (4)
  1. TYSABRI [Suspect]
     Indication: RELAPSING-REMITTING MULTIPLE SCLEROSIS
     Route: 042
     Dates: start: 2007, end: 201111
  2. TYSABRI [Suspect]
     Indication: RELAPSING-REMITTING MULTIPLE SCLEROSIS
     Route: 042
     Dates: start: 20130430, end: 20131216
  3. ALPRAZOLAM [Concomitant]
     Dates: start: 20090615
  4. VENLAFAXINE [Concomitant]
     Dates: start: 20090615

REACTIONS (2)
  - Multiple sclerosis relapse [Unknown]
  - Adverse event [Unknown]
